FAERS Safety Report 5927048-X (Version None)
Quarter: 2008Q4

REPORT INFORMATION
  Report Type: 
  Country: None (occurrence: None)
  Receive Date: 20081022
  Receipt Date: 20081016
  Transmission Date: 20090506
  Serious: Yes (Disabling, Other)
  Sender: FDA-Public Use
  Company Number: PHEH2007US15502

PATIENT
  Sex: Female
  Weight: 88.435 kg

DRUGS (3)
  1. AREDIA [Suspect]
     Indication: OSTEOLYSIS
     Dosage: 90 MG, QMO
     Route: 042
     Dates: start: 20000101, end: 20070627
  2. AREDIA [Suspect]
     Dosage: 90 MG, ONCE/SINGLE
     Route: 042
     Dates: start: 20080229, end: 20080229
  3. AREDIA [Suspect]
     Dosage: 90 MG, QMO
     Route: 042
     Dates: start: 20080523

REACTIONS (3)
  - FALL [None]
  - HIP FRACTURE [None]
  - IMPAIRED HEALING [None]
